FAERS Safety Report 4775692-8 (Version None)
Quarter: 2005Q3

REPORT INFORMATION
  Report Type: 
  Country: None (occurrence: None)
  Receive Date: 20050920
  Receipt Date: 20050920
  Transmission Date: 20060218
  Serious: Yes (Death)
  Sender: FDA-Public Use
  Company Number: None

PATIENT
  Age: 71 Year
  Sex: Male
  Weight: 85.7298 kg

DRUGS (11)
  1. SPIRONOLACTONE [Suspect]
     Indication: CARDIAC FAILURE
     Dosage: 25MG DAILY PO
     Route: 048
  2. LISINOPRIL [Suspect]
     Indication: CARDIAC FAILURE
     Dosage: 40MG DAILY PO
     Route: 048
  3. ALLOPURINOL [Concomitant]
  4. FUROSEMIDE [Concomitant]
  5. SPIRONOLACTONE [Concomitant]
  6. LISINOPRIL [Concomitant]
  7. ATENOLOL [Concomitant]
  8. DIGOXIN [Concomitant]
  9. ASPIRIN [Concomitant]
  10. ASCORBIC ACID [Concomitant]
  11. MULTI-VITAMIN [Concomitant]

REACTIONS (4)
  - CARDIAC ARREST [None]
  - HYPERKALAEMIA [None]
  - RENAL FAILURE ACUTE [None]
  - VENTRICULAR FIBRILLATION [None]
